FAERS Safety Report 6010167-X (Version None)
Quarter: 2008Q4

REPORT INFORMATION
  Report Type: 
  Country: None (occurrence: None)
  Receive Date: 20081216
  Receipt Date: 20081210
  Transmission Date: 20090506
  Serious: Yes (Death, Hospitalization)
  Sender: FDA-Public Use
  Company Number: FABR-1000460

PATIENT
  Age: 58 Year
  Sex: Male
  Weight: 78.5 kg

DRUGS (6)
  1. FABRAZYME [Suspect]
     Indication: FABRY'S DISEASE
     Dosage: 70 MG, Q2W, INTRAVENOUS
     Route: 042
     Dates: start: 20011011, end: 20080424
  2. ATENOLOL [Concomitant]
  3. CARBAMAZEPINE [Concomitant]
  4. LIPITOR [Concomitant]
  5. ASPIRIN [Concomitant]
  6. MAXERAN (METOCLOPRAMIDE HYDROCHLORIDE) [Concomitant]

REACTIONS (8)
  - CARDIOMYOPATHY [None]
  - CATHETER RELATED INFECTION [None]
  - DEPRESSED LEVEL OF CONSCIOUSNESS [None]
  - HICCUPS [None]
  - HYPOVOLAEMIA [None]
  - PERITONITIS [None]
  - PNEUMONIA [None]
  - SEPSIS [None]
